FAERS Safety Report 9659479 (Version 3)
Quarter: 2013Q4

REPORT INFORMATION
  Report Type: Report from Study
  Country: CH (occurrence: CH)
  Receive Date: 20131031
  Receipt Date: 20131118
  Transmission Date: 20140711
  Serious: Yes (Hospitalization, Other)
  Sender: FDA-Public Use
  Company Number: PHHO2013CH013971

PATIENT
  Sex: 0

DRUGS (6)
  1. CGS 20267 [Suspect]
     Indication: BREAST CANCER
     Dosage: 2.5 MG, QD
     Route: 048
     Dates: start: 20130622, end: 20131024
  2. CALCIUM [Concomitant]
  3. VITAMIN D3 [Concomitant]
  4. ELTROXIN [Concomitant]
     Dosage: 0.05 MG, UNK
     Route: 048
     Dates: start: 19790101
  5. PANTOZOL [Concomitant]
     Dosage: 20 MG, UNK
     Route: 048
     Dates: start: 20100810
  6. CYMBALTA [Concomitant]
     Indication: ANTIDEPRESSANT THERAPY
     Dosage: 30 MG, UNK
     Route: 048
     Dates: start: 20100810

REACTIONS (3)
  - Liver disorder [Not Recovered/Not Resolved]
  - Cholecystitis [Recovered/Resolved]
  - Sepsis [Recovered/Resolved]
